FAERS Safety Report 5151035-5 (Version None)
Quarter: 2006Q4

REPORT INFORMATION
  Report Type: 
  Country: None (occurrence: None)
  Receive Date: 20061115
  Receipt Date: 20061109
  Transmission Date: 20070319
  Serious: Yes (Other)
  Sender: FDA-Public Use
  Company Number: US-JNJFOC-20061102271

PATIENT

DRUGS (3)
  1. REMICADE [Suspect]
     Dosage: DOSE AT 6 WEEK
     Route: 042
  2. REMICADE [Suspect]
     Dosage: DOSE AT 2 WEEK
     Route: 042
  3. REMICADE [Suspect]
     Indication: RHEUMATOID ARTHRITIS
     Dosage: DOSE AT 0 WEEK
     Route: 042

REACTIONS (1)
  - PEMPHIGOID [None]
